FAERS Safety Report 16106208 (Version 1)
Quarter: 2019Q1

REPORT INFORMATION
  Report Type: Spontaneous
  Country: GB (occurrence: GB)
  Receive Date: 20190322
  Receipt Date: 20190322
  Transmission Date: 20190418
  Serious: Yes (Life-Threatening, Hospitalization)
  Sender: FDA-Public Use
  Company Number: GB-TEVA-2019-GB-1026812

PATIENT
  Age: 59 Year
  Sex: Female
  Weight: 48.07 kg

DRUGS (2)
  1. ESTRADIOL. [Suspect]
     Active Substance: ESTRADIOL
     Indication: MENOPAUSE
     Dosage: QUARTER LOZENGE PER DAY
     Dates: start: 20140403, end: 20171006
  2. PROGESTERONE. [Suspect]
     Active Substance: PROGESTERONE
     Indication: MENOPAUSE
     Dosage: QUARTER LOZENGE PER DAY
     Dates: start: 20140403, end: 20171006

REACTIONS (2)
  - Non-Hodgkin^s lymphoma [Unknown]
  - Intraductal proliferative breast lesion [Unknown]

NARRATIVE: CASE EVENT DATE: 20171110
